FAERS Safety Report 7374551-4 (Version None)
Quarter: 2011Q1

REPORT INFORMATION
  Report Type: 
  Country: None (occurrence: None)
  Receive Date: 20110325
  Receipt Date: 20100325
  Transmission Date: 20110831
  Serious: No
  Sender: FDA-Public Use
  Company Number: US-MYLANLABS-2010S1004227

PATIENT
  Age: 76 Year
  Sex: Male

DRUGS (9)
  1. FENTANYL-100 [Suspect]
     Indication: PROSTATE CANCER
     Dosage: CHANGED Q3D
     Route: 062
     Dates: start: 20100201
  2. ZOLOFT [Concomitant]
  3. VITAMIN B-12 [Concomitant]
  4. FENTANYL-100 [Suspect]
     Indication: PAIN
     Dosage: CHANGED Q3D
     Route: 062
     Dates: start: 20100201
  5. FISH OIL [Concomitant]
  6. VITAMIN E [Concomitant]
  7. CASODEX [Concomitant]
  8. ASPIRIN [Concomitant]
  9. VESICARE [Concomitant]

REACTIONS (4)
  - CONFUSIONAL STATE [None]
  - INSOMNIA [None]
  - MUSCLE SPASMS [None]
  - MUSCLE TWITCHING [None]
